FAERS Safety Report 7925775 (Version 3)
Quarter: 2014Q4

REPORT INFORMATION
  Report Type: Spontaneous
  Country: US (occurrence: US)
  Receive Date: 20110502
  Receipt Date: 20141030
  Transmission Date: 20150529
  Serious: No
  Sender: FDA-Public Use
  Company Number: US-ASTRAZENECA-2010SE46765

PATIENT
  Age: 57 Year
  Sex: Female

DRUGS (1)
  1. NEXIUM [Suspect]
     Active Substance: ESOMEPRAZOLE MAGNESIUM
     Route: 048

REACTIONS (9)
  - Fall [Unknown]
  - Nausea [Unknown]
  - Abdominal discomfort [Unknown]
  - Emotional distress [Unknown]
  - Malaise [Unknown]
  - Headache [Unknown]
  - Drug dose omission [Not Recovered/Not Resolved]
  - Scapula fracture [Unknown]
  - Rib fracture [Unknown]
